FAERS Safety Report 9768929 (Version 1)
Quarter: 2013Q4

REPORT INFORMATION
  Report Type: Spontaneous
  Country: US (occurrence: None)
  Receive Date: 20131217
  Receipt Date: 20131217
  Transmission Date: 20140711
  Serious: Yes (Life-Threatening)
  Sender: FDA-Public Use
  Company Number: None

PATIENT
  Age: 31 Year
  Sex: Male
  Weight: 70.31 kg

DRUGS (2)
  1. TRICLOSAN [Suspect]
     Indication: DENTAL CLEANING
  2. TRICLOSAN [Suspect]
     Indication: INFECTION PROPHYLAXIS

REACTIONS (13)
  - Swelling face [None]
  - Lip swelling [None]
  - Hypoaesthesia oral [None]
  - Eyelid disorder [None]
  - Eye pruritus [None]
  - Rash [None]
  - Rash pruritic [None]
  - Skin irritation [None]
  - Impaired work ability [None]
  - Paraesthesia [None]
  - Paraesthesia oral [None]
  - Rash [None]
  - Drug hypersensitivity [None]
